FAERS Safety Report 9503171 (Version 1)
Quarter: 2013Q3

REPORT INFORMATION
  Report Type: Spontaneous
  Country: US (occurrence: US)
  Receive Date: 20130906
  Receipt Date: 20130906
  Transmission Date: 20140515
  Serious: Yes (Other)
  Sender: FDA-Public Use
  Company Number: US-PFIZER INC-2013252316

PATIENT
  Age: 77 Year
  Sex: Female
  Weight: 95 kg

DRUGS (2)
  1. GLUCOTROL XL [Suspect]
     Indication: DIABETES MELLITUS
     Dosage: 10 MG, 1X/DAY
     Route: 048
  2. NEXIUM [Concomitant]
     Dosage: UNK

REACTIONS (5)
  - Hypertension [Unknown]
  - Drug ineffective [Unknown]
  - Body height decreased [Unknown]
  - Weight increased [Unknown]
  - Hernia [Unknown]
